FAERS Safety Report 18026629 (Version 1)
Quarter: 2020Q3

REPORT INFORMATION
  Report Type: Spontaneous
  Country: US (occurrence: US)
  Receive Date: 20200715
  Receipt Date: 20200715
  Transmission Date: 20201103
  Serious: No
  Sender: FDA-Public Use
  Company Number: NVSC2020US197672

PATIENT
  Sex: Male

DRUGS (2)
  1. XIIDRA [Suspect]
     Active Substance: LIFITEGRAST
     Indication: PRODUCT USED FOR UNKNOWN INDICATION
     Dosage: 2 UNK, QD (2/DAY)
     Route: 065
  2. FRESHKOTE [Concomitant]
     Active Substance: POLYVINYL ALCOHOL\POVIDONE
     Indication: PRODUCT USED FOR UNKNOWN INDICATION
     Dosage: UNK
     Route: 047

REACTIONS (5)
  - Eye pain [Not Recovered/Not Resolved]
  - Eye irritation [Not Recovered/Not Resolved]
  - Inflammation [Not Recovered/Not Resolved]
  - Erythema [Not Recovered/Not Resolved]
  - Drug ineffective [Not Recovered/Not Resolved]
